FAERS Safety Report 7672559-2 (Version None)
Quarter: 2011Q3

REPORT INFORMATION
  Report Type: 
  Country: None (occurrence: None)
  Receive Date: 20110803
  Receipt Date: 20110718
  Transmission Date: 20111222
  Serious: Yes (Life-Threatening, Hospitalization)
  Sender: FDA-Public Use
  Company Number: DSA_47307_2011

PATIENT
  Age: 72 Year
  Sex: Male

DRUGS (8)
  1. CALCIUM/VITAMIN D [Concomitant]
  2. BICALUTAMIDE [Concomitant]
  3. IBUPROFEN [Concomitant]
  4. ENALAPRIL MALEATE [Suspect]
     Indication: HYPERTENSION
     Dosage: (5 MG BID ORAL)
     Route: 048
     Dates: start: 20080301, end: 20100611
  5. CYANOCOBALAMIN [Concomitant]
  6. RIDAFOROLIMUS [Concomitant]
  7. LUPRON [Concomitant]
  8. HYDROCHLROTHIAZIDE [Concomitant]

REACTIONS (9)
  - PHARYNGEAL OEDEMA [None]
  - HYPERGLYCAEMIA [None]
  - DRUG HYPERSENSITIVITY [None]
  - LIP SWELLING [None]
  - OBSTRUCTIVE AIRWAYS DISORDER [None]
  - URTICARIA [None]
  - SWOLLEN TONGUE [None]
  - ACUTE RESPIRATORY FAILURE [None]
  - RESPIRATORY DISTRESS [None]
